FAERS Safety Report 17958031 (Version 2)
Quarter: 2022Q1

REPORT INFORMATION
  Report Type: Spontaneous
  Country: US (occurrence: US)
  Receive Date: 20200629
  Receipt Date: 20220226
  Transmission Date: 20220423
  Serious: Yes (Hospitalization, Other)
  Sender: FDA-Public Use
  Company Number: US-AMNEAL PHARMACEUTICALS-2020-AMRX-01804

PATIENT
  Age: 1 Year
  Sex: Female

DRUGS (2)
  1. VIGABATRIN [Suspect]
     Active Substance: VIGABATRIN
     Indication: Infantile spasms
     Dosage: 1000 MILLIGRAM, BID
     Route: 048
  2. VIGABATRIN [Suspect]
     Active Substance: VIGABATRIN
     Dosage: 20 ML (1000 MG) VIA G-BUTTON TWICE A DAY (MIXED 2 PACKETS IN 20 ML OF WATER)
     Route: 048

REACTIONS (3)
  - Respiratory distress [Unknown]
  - Seizure [Unknown]
  - Product dose omission issue [Unknown]

NARRATIVE: CASE EVENT DATE: 20200615
